FAERS Safety Report 7322215-5 (Version None)
Quarter: 2011Q1

REPORT INFORMATION
  Report Type: 
  Country: None (occurrence: None)
  Receive Date: 20110301
  Receipt Date: 20110223
  Transmission Date: 20110831
  Serious: Yes (Hospitalization, Other)
  Sender: FDA-Public Use
  Company Number: US-ASTRAZENECA-2007UW02060

PATIENT
  Age: 12637 Day
  Sex: Male
  Weight: 73.9 kg

DRUGS (42)
  1. NEURONTIN [Concomitant]
     Dosage: 800 MG TWO TABS PO BID
     Route: 048
     Dates: start: 20010327
  2. KALETRA [Concomitant]
     Dosage: 33.3 - 200 MG
     Route: 048
     Dates: start: 20060825
  3. VALTREX [Concomitant]
     Route: 048
  4. GLYBURIDE [Concomitant]
     Indication: DIABETES MELLITUS
     Dosage: 2.5 - 5 MG
     Route: 048
     Dates: start: 20051003
  5. NEVIRAPINE [Concomitant]
     Route: 048
     Dates: start: 20070410
  6. DOXEPIN [Concomitant]
     Route: 048
     Dates: start: 20010327
  7. DAPSONE [Concomitant]
     Dosage: 25 - 100 MG
     Route: 048
  8. LORATADINE [Concomitant]
     Indication: NASAL CONGESTION
     Route: 048
  9. ACYCLOVIR [Concomitant]
     Indication: RASH
     Dosage: 600 - 800 MG
     Route: 048
     Dates: start: 20060613
  10. REMERON [Concomitant]
     Route: 048
     Dates: end: 20020425
  11. VIDEX EC [Concomitant]
     Route: 048
     Dates: start: 20070410
  12. D4T [Concomitant]
     Route: 048
     Dates: start: 20070410
  13. CELEXA [Concomitant]
     Route: 048
     Dates: start: 20010327
  14. EPIVIR [Concomitant]
     Dosage: 150 - 300 MG
     Route: 048
  15. VIREAD [Concomitant]
     Route: 048
  16. ACETAMINOPHEN [Concomitant]
     Dosage: 30 - 325 MG
     Route: 048
  17. CEFTIN [Concomitant]
     Dosage: 250 500 MG
     Route: 048
  18. ZITHROMAX [Concomitant]
     Indication: BRONCHITIS
     Dosage: 250 - 500 MG
     Route: 048
     Dates: start: 20040416
  19. LISINOPRIL [Concomitant]
     Dosage: 2.5 - 5 MG
     Route: 048
     Dates: start: 20051003
  20. SEROQUEL [Suspect]
     Dosage: 25 MG - 250 MG
     Route: 048
     Dates: start: 20010327
  21. SEROQUEL [Suspect]
     Dosage: 25 MG - 250 MG
     Route: 048
     Dates: start: 20010327
  22. SEROQUEL [Suspect]
     Route: 048
     Dates: start: 20010327
  23. SEROQUEL [Suspect]
     Route: 048
     Dates: start: 20010327
  24. FLONASE [Concomitant]
     Route: 045
  25. LOMOTIL [Concomitant]
     Dosage: 0.025 - 2.5 MG TWO TABS PO BID
     Route: 048
     Dates: start: 20070410
  26. TRAZODONE HCL [Concomitant]
     Indication: INSOMNIA
     Dosage: 50 - 100 MG
     Route: 048
  27. TRUVADA [Concomitant]
     Dosage: 200 - 300 MG
     Route: 048
  28. METFORMIN [Concomitant]
     Dosage: 500 - 1000 MG
     Route: 048
     Dates: start: 20051003
  29. EMTRIVA [Concomitant]
     Route: 048
  30. PRILOSEC [Concomitant]
     Route: 048
     Dates: start: 20070129
  31. PROZAC [Concomitant]
     Route: 048
  32. NEURONTIN [Concomitant]
     Indication: ANXIETY
     Dosage: 300 - 800 MG
     Route: 048
  33. THIAMINE [Concomitant]
     Route: 048
     Dates: start: 20060416
  34. MYCELEX [Concomitant]
     Route: 048
  35. SEROQUEL [Suspect]
     Indication: BIPOLAR DISORDER
     Route: 048
     Dates: start: 19990701
  36. NAPROSYN [Concomitant]
     Route: 048
  37. SEROQUEL [Suspect]
     Indication: POST-TRAUMATIC STRESS DISORDER
     Route: 048
     Dates: start: 19990701
  38. GEODON [Concomitant]
  39. INDERAL [Concomitant]
     Dosage: 60 - 120 MG
     Route: 048
  40. PROTONIX [Concomitant]
     Route: 048
  41. WELLBUTRIN [Concomitant]
     Dosage: 100 - 150 MG
     Route: 048
     Dates: start: 20020425
  42. KETOCONAZOLE [Concomitant]
     Route: 048
     Dates: start: 20020425

REACTIONS (11)
  - DIABETIC KETOACIDOSIS [None]
  - GASTROOESOPHAGEAL REFLUX DISEASE [None]
  - ORAL CANDIDIASIS [None]
  - HERPES VIRUS INFECTION [None]
  - TYPE 2 DIABETES MELLITUS [None]
  - DYSPEPSIA [None]
  - PENILE ULCERATION [None]
  - NEUROPATHY PERIPHERAL [None]
  - DIABETIC COMA [None]
  - HYPERGLYCAEMIA [None]
  - TINEA INFECTION [None]
